FAERS Safety Report 8440624-8 (Version None)
Quarter: 2012Q2

REPORT INFORMATION
  Report Type: 
  Country: None (occurrence: None)
  Receive Date: 20120615
  Receipt Date: 20120605
  Transmission Date: 20120825
  Serious: Yes (Life-Threatening, Hospitalization, Disabling)
  Sender: FDA-Public Use
  Company Number: US-MERCK-1206USA00831

PATIENT
  Sex: Female

DRUGS (2)
  1. ALENDRONATE SODIUM [Suspect]
     Route: 065
     Dates: start: 20080201, end: 20100601
  2. FOSAMAX [Suspect]
     Route: 048
     Dates: start: 20040101, end: 20080201

REACTIONS (1)
  - FEMUR FRACTURE [None]
